FAERS Safety Report 22805944 (Version 4)
Quarter: 2024Q1

REPORT INFORMATION
  Report Type: Spontaneous
  Country: US (occurrence: US)
  Receive Date: 20230809
  Receipt Date: 20240201
  Transmission Date: 20240410
  Serious: Yes (Other)
  Sender: FDA-Public Use
  Company Number: US-PFIZER INC-PV202300137164

PATIENT
  Age: 70 Year
  Sex: Female

DRUGS (11)
  1. IBRANCE [Suspect]
     Active Substance: PALBOCICLIB
     Dosage: 100 MG, DAILY
     Route: 048
     Dates: start: 20230619, end: 20230720
  2. IBRANCE [Suspect]
     Active Substance: PALBOCICLIB
     Dosage: 75 MG, DAILY
     Route: 048
     Dates: start: 20200803
  3. FULVESTRANT [Concomitant]
     Active Substance: FULVESTRANT
     Indication: Breast cancer female
     Dosage: 250 MG/5ML INJ. 2X5ML
  4. ESTRADIOL [Concomitant]
     Active Substance: ESTRADIOL
     Dosage: 42.5 G
     Route: 067
  5. ESCITALOPRAM [Concomitant]
     Active Substance: ESCITALOPRAM OXALATE
     Dosage: 10 MG
  6. METAMUCIL ORANGE [Concomitant]
     Dosage: 286 MG
  7. METAMUCIL ORANGE [Concomitant]
     Dosage: 283 MG
  8. LISINOPRIL [Concomitant]
     Active Substance: LISINOPRIL
     Dosage: 20 MG
  9. PROLIA [Concomitant]
     Active Substance: DENOSUMAB
     Dosage: 1 ML
  10. CLARITHROMYCIN [Concomitant]
     Active Substance: CLARITHROMYCIN
     Dosage: 10 MG
  11. SENNA LEAF [Concomitant]
     Active Substance: SENNA LEAF
     Dosage: 8.6 MG

REACTIONS (2)
  - Neutropenia [Recovered/Resolved]
  - Product dose omission issue [Unknown]
